FAERS Safety Report 15226231 (Version 2)
Quarter: 2018Q3

REPORT INFORMATION
  Report Type: Spontaneous
  Country: US (occurrence: US)
  Receive Date: 20180801
  Receipt Date: 20180823
  Transmission Date: 20181010
  Serious: Yes (Hospitalization, Other)
  Sender: FDA-Public Use
  Company Number: US-GLAXOSMITHKLINE-US2018GSK135842

PATIENT
  Sex: Female

DRUGS (3)
  1. ADVAIR DISKUS [Suspect]
     Active Substance: FLUTICASONE PROPIONATE\SALMETEROL XINAFOATE
     Indication: ASTHMA
     Dosage: 1 PUFF(S), BID
     Dates: start: 2000
  2. PREDNISONE. [Suspect]
     Active Substance: PREDNISONE
  3. VENTOLIN HFA [Suspect]
     Active Substance: ALBUTEROL SULFATE
     Indication: ASTHMA

REACTIONS (16)
  - Coronary arterial stent insertion [Unknown]
  - Dry mouth [Unknown]
  - Aortic valve replacement [Unknown]
  - Catheterisation cardiac [Unknown]
  - Back pain [Recovered/Resolved]
  - Arthritis [Unknown]
  - Aspiration [Unknown]
  - Gallbladder disorder [Recovered/Resolved]
  - Candida infection [Recovered/Resolved]
  - Sleep apnoea syndrome [Unknown]
  - Coronary artery bypass [Unknown]
  - Pancreatitis [Recovered/Resolved]
  - Life support [Recovered/Resolved]
  - Vomiting [Recovered/Resolved]
  - Fibromyalgia [Unknown]
  - Cardiac operation [Unknown]

NARRATIVE: CASE EVENT DATE: 2011
